FAERS Safety Report 13062740 (Version 1)
Quarter: 2016Q4

REPORT INFORMATION
  Report Type: Spontaneous
  Country: FR (occurrence: FR)
  Receive Date: 20161226
  Receipt Date: 20161226
  Transmission Date: 20170207
  Serious: Yes (Other)
  Sender: FDA-Public Use
  Company Number: PHHY2016FR176796

PATIENT
  Age: 73 Year
  Sex: Male

DRUGS (1)
  1. REVOLADE [Suspect]
     Active Substance: ELTROMBOPAG
     Indication: LEUKAEMIA
     Dosage: 50 MG, QD
     Route: 065
     Dates: start: 201609

REACTIONS (2)
  - Product use issue [Unknown]
  - Iron overload [Unknown]

NARRATIVE: CASE EVENT DATE: 201609
